FAERS Safety Report 21671750 (Version 1)
Quarter: 2022Q4

REPORT INFORMATION
  Report Type: Spontaneous
  Country: AU (occurrence: None)
  Receive Date: 20221202
  Receipt Date: 20221202
  Transmission Date: 20230113
  Serious: Yes (Other)
  Sender: FDA-Public Use
  Company Number: AU-ROCHE-3229747

PATIENT
  Age: 48 Year

DRUGS (1)
  1. TOCILIZUMAB [Suspect]
     Active Substance: TOCILIZUMAB
     Indication: Product used for unknown indication
     Route: 065

REACTIONS (8)
  - Abdominal pain lower [Unknown]
  - Chest discomfort [Unknown]
  - Chills [Unknown]
  - Flushing [Unknown]
  - Hypotension [Unknown]
  - Loss of consciousness [Unknown]
  - Pallor [Unknown]
  - Syncope [Unknown]
